FAERS Safety Report 7200309-2 (Version None)
Quarter: 2010Q4

REPORT INFORMATION
  Report Type: 
  Country: None (occurrence: None)
  Receive Date: 20101228
  Receipt Date: 20101221
  Transmission Date: 20110411
  Serious: Yes (Hospitalization)
  Sender: FDA-Public Use
  Company Number: B0690353A

PATIENT
  Sex: Female

DRUGS (2)
  1. CLAMOXYL [Suspect]
     Indication: TONSILLITIS
     Dosage: 1G THREE TIMES PER DAY
     Route: 048
     Dates: start: 20100701, end: 20100801
  2. TOPLEXIL [Suspect]
     Indication: COUGH
     Dosage: 1SP THREE TIMES PER DAY
     Route: 048
     Dates: start: 20101011, end: 20101015

REACTIONS (3)
  - ECCHYMOSIS [None]
  - IDIOPATHIC THROMBOCYTOPENIC PURPURA [None]
  - THROMBOCYTOPENIA [None]
